FAERS Safety Report 8880676 (Version 2)
Quarter: 2013Q2

REPORT INFORMATION
  Report Type: Spontaneous
  Country: US (occurrence: US)
  Receive Date: 20121101
  Receipt Date: 20130418
  Transmission Date: 20140414
  Serious: No
  Sender: FDA-Public Use
  Company Number: US-009507513-1210USA010970

PATIENT
  Sex: Female
  Weight: 63.49 kg

DRUGS (3)
  1. ZEGERID OTC CAPSULES [Suspect]
     Indication: GASTROOESOPHAGEAL REFLUX DISEASE
     Dosage: 20 MG, BID
     Route: 048
     Dates: start: 2012
  2. ZEGERID OTC CAPSULES [Suspect]
     Indication: MEDICAL OBSERVATION
  3. ZOLOFT [Concomitant]
     Indication: PRODUCT USED FOR UNKNOWN INDICATION
     Dosage: UNK, UNKNOWN

REACTIONS (3)
  - Dysphemia [Recovered/Resolved]
  - Overdose [Unknown]
  - Incorrect drug administration duration [Unknown]
